FAERS Safety Report 7035870 (Version 4)
Quarter: 2020Q2

REPORT INFORMATION
  Report Type: Spontaneous
  Country: US (occurrence: US)
  Receive Date: 20090629
  Receipt Date: 20200622
  Transmission Date: 20200714
  Serious: Yes (Other)
  Sender: FDA-Public Use
  Company Number: US-PFIZER INC-2009228199

PATIENT
  Age: 32 Year
  Sex: Female
  Weight: 43.76 kg

DRUGS (2)
  1. AMOXICILLIN. [Suspect]
     Active Substance: AMOXICILLIN
     Indication: INFECTION
     Dosage: UNK
     Dates: start: 2009
  2. DILANTIN-125 [Suspect]
     Active Substance: PHENYTOIN
     Indication: EPILEPSY
     Dosage: UNK

REACTIONS (5)
  - Anticonvulsant drug level above therapeutic [Unknown]
  - Pneumonia [Unknown]
  - Tremor [Unknown]
  - Anticonvulsant drug level decreased [Unknown]
  - Seizure [Unknown]

NARRATIVE: CASE EVENT DATE: 200904
